FAERS Safety Report 8516024-9 (Version None)
Quarter: 2012Q3

REPORT INFORMATION
  Report Type: 
  Country: None (occurrence: None)
  Receive Date: 20120717
  Receipt Date: 20120409
  Transmission Date: 20120928
  Serious: No
  Sender: FDA-Public Use
  Company Number: US-NOVEN-12US004449

PATIENT
  Sex: Male

DRUGS (2)
  1. FENTANYL [Suspect]
     Indication: PAIN
     Dosage: 50 UG/HR, EVERY 72HRS
     Route: 062
     Dates: start: 20120402
  2. FENTANYL [Suspect]
     Dosage: UNK

REACTIONS (3)
  - INADEQUATE ANALGESIA [None]
  - WITHDRAWAL SYNDROME [None]
  - PRODUCT QUALITY ISSUE [None]
